FAERS Safety Report 8512738-5 (Version None)
Quarter: 2012Q3

REPORT INFORMATION
  Report Type: 
  Country: None (occurrence: None)
  Receive Date: 20120716
  Receipt Date: 20120702
  Transmission Date: 20120928
  Serious: No
  Sender: FDA-Public Use
  Company Number: US-ASTRAZENECA-2012SE44957

PATIENT
  Sex: Male

DRUGS (1)
  1. SYMBICORT [Suspect]
     Route: 055
     Dates: start: 20120601

REACTIONS (6)
  - RESPIRATORY DISORDER [None]
  - ASTHENIA [None]
  - NERVOUSNESS [None]
  - DIARRHOEA [None]
  - WHEEZING [None]
  - HEADACHE [None]
